FAERS Safety Report 5232355-2 (Version None)
Quarter: 2007Q1

REPORT INFORMATION
  Report Type: 
  Country: None (occurrence: None)
  Receive Date: 20070207
  Receipt Date: 20070125
  Transmission Date: 20070707
  Serious: Yes (Other)
  Sender: FDA-Public Use
  Company Number: US-AMGEN-STX163548

PATIENT
  Sex: Male

DRUGS (1)
  1. ENBREL [Suspect]
     Indication: PSORIASIS
     Dates: start: 20050201, end: 20051205

REACTIONS (7)
  - ASTHENIA [None]
  - DECREASED APPETITE [None]
  - DIZZINESS [None]
  - HYPOAESTHESIA [None]
  - PARAESTHESIA [None]
  - VISION BLURRED [None]
  - WEIGHT DECREASED [None]
